FAERS Safety Report 7748215-9 (Version None)
Quarter: 2011Q3

REPORT INFORMATION
  Report Type: 
  Country: None (occurrence: None)
  Receive Date: 20110913
  Receipt Date: 20110527
  Transmission Date: 20111222
  Serious: No
  Sender: FDA-Public Use
  Company Number: US-ELI_LILLY_AND_COMPANY-US201106000219

PATIENT
  Age: 57 Year
  Sex: Male

DRUGS (10)
  1. TRAZODONE HCL [Concomitant]
     Dosage: 200 MG, QD
     Route: 048
  2. VITAMIN D [Concomitant]
     Dosage: 1000 U, QD
     Route: 048
  3. PROVIGIL [Concomitant]
     Dosage: 200 MG, QD
     Route: 048
  4. MELATONIN [Concomitant]
     Dosage: 5 MG, QD
     Route: 048
  5. CYMBALTA [Suspect]
     Indication: MAJOR DEPRESSION
     Dosage: 60 MG, QD
     Route: 048
     Dates: start: 20100527
  6. CALCIUM + VITAMIN D [Concomitant]
     Dosage: 1 DF, BID
     Route: 048
  7. LITHIUM CARBONATE [Concomitant]
     Dosage: 900 MG, QD
  8. LIPITOR [Concomitant]
     Dosage: 20 MG, QD
     Route: 048
  9. ADDERALL XR 10 [Concomitant]
     Dosage: 60 MG, QD
     Route: 048
  10. OMEGA-3 FATTY ACIDS [Concomitant]
     Dosage: 1250 MG, BID
     Route: 048

REACTIONS (5)
  - ERECTILE DYSFUNCTION [None]
  - ALANINE AMINOTRANSFERASE INCREASED [None]
  - ASPARTATE AMINOTRANSFERASE INCREASED [None]
  - BLOOD BILIRUBIN INCREASED [None]
  - ANORGASMIA [None]
